FAERS Safety Report 16852306 (Version 2)
Quarter: 2019Q4

REPORT INFORMATION
  Report Type: Spontaneous
  Country: US (occurrence: US)
  Receive Date: 20190925
  Receipt Date: 20191122
  Transmission Date: 20200122
  Serious: Yes (Other)
  Sender: FDA-Public Use
  Company Number: US-ASTRAZENECA-2019SF33325

PATIENT
  Age: 24904 Day
  Sex: Male
  Weight: 61.2 kg

DRUGS (4)
  1. SYMBICORT [Suspect]
     Active Substance: BUDESONIDE\FORMOTEROL FUMARATE DIHYDRATE
     Indication: EMPHYSEMA
     Dosage: 160/4.5 MCG., 2 PUFFS TWICE A DAY
     Route: 055
     Dates: start: 2015
  2. VENTOLIN [Concomitant]
     Active Substance: ALBUTEROL SULFATE
     Indication: ASTHMA
     Dosage: AS REQUIRED
  3. VENTOLIN [Concomitant]
     Active Substance: ALBUTEROL SULFATE
     Indication: WHEEZING
     Dosage: AS REQUIRED
  4. ASPIRIN. [Concomitant]
     Active Substance: ASPIRIN
     Indication: CEREBROVASCULAR ACCIDENT

REACTIONS (8)
  - Dyspnoea [Not Recovered/Not Resolved]
  - Hypertension [Unknown]
  - Device malfunction [Unknown]
  - Fatigue [Not Recovered/Not Resolved]
  - Transient ischaemic attack [Recovered/Resolved]
  - Product packaging quantity issue [Unknown]
  - Drug ineffective [Not Recovered/Not Resolved]
  - Intentional device misuse [Unknown]

NARRATIVE: CASE EVENT DATE: 20190911
